FAERS Safety Report 18970480 (Version 1)
Quarter: 2021Q1

REPORT INFORMATION
  Report Type: Other
  Country: US (occurrence: US)
  Receive Date: 20210304
  Receipt Date: 20210304
  Transmission Date: 20210420
  Serious: Yes (Disabling, Other)
  Sender: FDA-Public Use
  Company Number: US-GENUS_LIFESCIENCES-USA-POI0580202100106

PATIENT
  Age: 61 Year
  Sex: Male

DRUGS (1)
  1. GOPRELTO [Suspect]
     Active Substance: COCAINE HYDROCHLORIDE
     Indication: DRUG ABUSE
     Dosage: UNK
     Route: 045
     Dates: start: 2020

REACTIONS (1)
  - Retinal fovea disorder [Not Recovered/Not Resolved]

NARRATIVE: CASE EVENT DATE: 2020
